FAERS Safety Report 6044104-9 (Version None)
Quarter: 2009Q1

REPORT INFORMATION
  Report Type: 
  Country: None (occurrence: None)
  Receive Date: 20090115
  Receipt Date: 20090115
  Transmission Date: 20090719
  Serious: Yes (Disabling)
  Sender: FDA-Public Use
  Company Number: None

PATIENT
  Sex: Female

DRUGS (4)
  1. WARFARIN SODIUM [Suspect]
     Indication: ATRIAL FIBRILLATION
     Dosage: 5 MG MON THRU FRI PO
     Route: 048
     Dates: start: 20081201, end: 20081231
  2. WARFARIN SODIUM [Suspect]
     Indication: ATRIAL FIBRILLATION
     Dosage: 5 MG MON THRU FRI PO
     Route: 048
     Dates: end: 20090104
  3. WARFARIN SODIUM [Suspect]
     Indication: ATRIAL FIBRILLATION
     Dosage: 7.5 MG SAT, SUN PO
     Route: 048
     Dates: start: 20081201, end: 20081231
  4. WARFARIN SODIUM [Suspect]
     Indication: ATRIAL FIBRILLATION
     Dosage: 7.5 MG SAT, SUN PO
     Route: 048
     Dates: end: 20090104

REACTIONS (1)
  - INTERNATIONAL NORMALISED RATIO INCREASED [None]
